FAERS Safety Report 24027156 (Version 1)
Quarter: 2024Q2

REPORT INFORMATION
  Report Type: Spontaneous
  Country: US (occurrence: US)
  Receive Date: 20240628
  Receipt Date: 20240628
  Transmission Date: 20240716
  Serious: No
  Sender: FDA-Public Use
  Company Number: US-BRISTOL-MYERS SQUIBB COMPANY-2024-103046

PATIENT
  Age: 69 Year
  Sex: Male

DRUGS (1)
  1. REVLIMID [Suspect]
     Active Substance: LENALIDOMIDE
     Indication: Plasma cell myeloma
     Dosage: FREQ: ONE TIME PER DAY FOR 14 DAYS. REPEAT EVERY 3 WEEKS
     Route: 048
     Dates: start: 201012

REACTIONS (2)
  - Paraproteinaemia [Unknown]
  - Off label use [Unknown]
